FAERS Safety Report 15626837 (Version 2)
Quarter: 2018Q4

REPORT INFORMATION
  Report Type: Spontaneous
  Country: FR (occurrence: FR)
  Receive Date: 20181116
  Receipt Date: 20181116
  Transmission Date: 20190205
  Serious: Yes (Other)
  Sender: FDA-Public Use
  Company Number: FR-TEVA-2018-FR-977151

PATIENT
  Age: 42 Year
  Sex: Male

DRUGS (4)
  1. ACITRETIN. [Suspect]
     Active Substance: ACITRETIN
     Indication: LICHEN PLANUS
     Route: 065
  2. PREDNISONE. [Suspect]
     Active Substance: PREDNISONE
     Indication: LICHEN PLANUS
     Route: 048
  3. CORTICOSTEROIDS [Concomitant]
     Active Substance: CORTICOSTEROID NOS
     Route: 061
  4. PHOTOTHERAPY [Concomitant]
     Route: 065

REACTIONS (5)
  - Drug ineffective [Unknown]
  - Dyslipidaemia [Unknown]
  - Weight increased [Unknown]
  - Squamous cell carcinoma [Unknown]
  - Cushingoid [Unknown]
